FAERS Safety Report 24808743 (Version 3)
Quarter: 2025Q3

REPORT INFORMATION
  Report Type: Report from Study
  Country: US (occurrence: US)
  Receive Date: 20250106
  Receipt Date: 20250803
  Transmission Date: 20251021
  Serious: Yes (Other)
  Sender: ALEXION PHARMACEUTICALS
  Company Number: US-AstraZeneca-CH-00776404A

PATIENT
  Sex: Female
  Weight: 73 kg

DRUGS (2)
  1. CAPIVASERTIB [Interacting]
     Active Substance: CAPIVASERTIB
     Indication: Breast cancer female
     Dosage: 400 MILLIGRAM, BID
     Dates: start: 20241220
  2. INSULIN NOS [Interacting]
     Active Substance: INSULIN NOS

REACTIONS (3)
  - Oropharyngeal pain [Recovered/Resolved]
  - Blood glucose increased [Recovered/Resolved]
  - Drug interaction [Recovered/Resolved]
